FAERS Safety Report 10501000 (Version 1)
Quarter: 2014Q4

REPORT INFORMATION
  Report Type: Spontaneous
  Country: IT (occurrence: IT)
  Receive Date: 20141007
  Receipt Date: 20141007
  Transmission Date: 20150528
  Serious: Yes (Hospitalization)
  Sender: FDA-Public Use
  Company Number: IT-AUROBINDO-AUR-APL-2014-10519

PATIENT
  Age: 82 Year
  Sex: Female

DRUGS (9)
  1. CARDIOASPIRIN [Concomitant]
     Active Substance: ASPIRIN
     Indication: THROMBOSIS PROPHYLAXIS
     Dosage: 100 MG, UNK
     Route: 048
     Dates: start: 20130328, end: 20140328
  2. BLOPRESID [Concomitant]
     Active Substance: CANDESARTAN CILEXETIL\HYDROCHLOROTHIAZIDE
     Indication: HYPERTENSION
     Dosage: 1 DF, UNK
     Route: 048
     Dates: start: 20130328, end: 20140328
  3. PANTOPRAZOLE [Concomitant]
     Active Substance: PANTOPRAZOLE SODIUM
     Indication: DIABETES MELLITUS
     Dosage: 20 MG, UNK
     Route: 048
     Dates: start: 20130328, end: 20140328
  4. TORVAST [Concomitant]
     Active Substance: ATORVASTATIN
     Indication: DYSLIPIDAEMIA
     Dosage: 2 DF, UNK
     Route: 048
     Dates: start: 20130328, end: 20140328
  5. RANEXA [Concomitant]
     Active Substance: RANOLAZINE
     Indication: MYOCARDIAL ISCHAEMIA
     Dosage: 2 DF, UNK
     Route: 048
     Dates: start: 20130328, end: 20140328
  6. NOVONORM [Concomitant]
     Active Substance: REPAGLINIDE
     Indication: DIABETES MELLITUS
     Dosage: 3 DF, UNK
     Route: 048
     Dates: start: 20130328, end: 20140328
  7. METOPROLOL [Suspect]
     Active Substance: METOPROLOL
     Indication: HYPERTENSION
     Dosage: 25 MG, TWO TIMES A DAY
     Route: 048
     Dates: start: 20140215, end: 20140328
  8. MONOKET [Concomitant]
     Active Substance: ISOSORBIDE MONONITRATE
     Indication: CORONARY ARTERY INSUFFICIENCY
     Dosage: 60 MG, UNK
     Route: 048
     Dates: start: 20130328, end: 20140328
  9. METFORMIN [Concomitant]
     Active Substance: METFORMIN HYDROCHLORIDE
     Indication: DIABETES MELLITUS
     Dosage: 1 G, UNK
     Route: 048
     Dates: start: 20130328, end: 20140328

REACTIONS (4)
  - Syncope [Recovered/Resolved]
  - Atrial fibrillation [Unknown]
  - Bradycardia [Unknown]
  - Chest pain [Unknown]

NARRATIVE: CASE EVENT DATE: 20140328
